FAERS Safety Report 25324399 (Version 1)
Quarter: 2025Q2

REPORT INFORMATION
  Report Type: Report from Study
  Country: US (occurrence: US)
  Receive Date: 20250516
  Receipt Date: 20250516
  Transmission Date: 20250716
  Serious: Yes (Other)
  Sender: JOHNSON AND JOHNSON
  Company Number: US-JNJFOC-20250514637

PATIENT
  Sex: Female

DRUGS (1)
  1. REMICADE [Suspect]
     Active Substance: INFLIXIMAB
     Indication: Product used for unknown indication
     Route: 041

REACTIONS (9)
  - Colitis [Unknown]
  - Renal pain [Unknown]
  - Nausea [Unknown]
  - Arthralgia [Unknown]
  - Escherichia infection [Unknown]
  - Back pain [Unknown]
  - Fatigue [Unknown]
  - Inflammation [Unknown]
  - Drug level decreased [Unknown]
